FAERS Safety Report 4775677-1 (Version None)
Quarter: 2005Q3

REPORT INFORMATION
  Report Type: 
  Country: None (occurrence: None)
  Receive Date: 20050920
  Receipt Date: 20050908
  Transmission Date: 20060218
  Serious: Yes (Hospitalization, Other)
  Sender: FDA-Public Use
  Company Number: HQWYE384112SEP05

PATIENT
  Age: 62 Year
  Sex: Female
  Weight: 52.21 kg

DRUGS (6)
  1. EFFEXOR XR [Suspect]
     Indication: DEPRESSION
     Dosage: 150 MG 1X PER 1 DAY, ORAL
     Route: 048
     Dates: start: 20050101, end: 20050901
  2. VANCOMYCIN [Concomitant]
  3. CEFEPIME (CEFEPIME) [Concomitant]
  4. TOBRAMYCIN [Concomitant]
  5. MORPHINE [Concomitant]
  6. ALBUTEROL [Concomitant]

REACTIONS (12)
  - APHASIA [None]
  - ASTHENIA [None]
  - BRAIN NEOPLASM [None]
  - CONFUSIONAL STATE [None]
  - DEPRESSED LEVEL OF CONSCIOUSNESS [None]
  - DRUG WITHDRAWAL SYNDROME [None]
  - DYSSTASIA [None]
  - FALL [None]
  - MENTAL STATUS CHANGES [None]
  - NEOPLASM PROGRESSION [None]
  - SOMNOLENCE [None]
  - UNRESPONSIVE TO VERBAL STIMULI [None]
